FAERS Safety Report 12455143 (Version 1)
Quarter: 2016Q2

REPORT INFORMATION
  Report Type: Spontaneous
  Country: US (occurrence: None)
  Receive Date: 20160609
  Receipt Date: 20160609
  Transmission Date: 20160815
  Serious: No
  Sender: FDA-Public Use
  Company Number: None

PATIENT
  Age: 56 Year
  Sex: Female

DRUGS (1)
  1. IMATINIB [Suspect]
     Active Substance: IMATINIB
     Route: 048
     Dates: start: 20160209

REACTIONS (9)
  - Protein urine present [None]
  - Arthralgia [None]
  - Dyspnoea [None]
  - Nausea [None]
  - Swelling face [None]
  - Pulmonary congestion [None]
  - Head discomfort [None]
  - Skin disorder [None]
  - Pharyngitis [None]

NARRATIVE: CASE EVENT DATE: 20160501
